FAERS Safety Report 5082193-9 (Version None)
Quarter: 2006Q3

REPORT INFORMATION
  Report Type: 
  Country: None (occurrence: None)
  Receive Date: 20060815
  Receipt Date: 20060815
  Transmission Date: 20061208
  Serious: Yes (Hospitalization)
  Sender: FDA-Public Use
  Company Number: None

PATIENT
  Age: 55 Year
  Sex: Male
  Weight: 54.8852 kg

DRUGS (13)
  1. OXALIPLATIN [Suspect]
     Indication: NEOPLASM MALIGNANT
     Dosage: 130MG/M2 Q 21 DAYS IV
     Route: 042
     Dates: start: 20060808
  2. TAXOTERE [Suspect]
     Indication: NEOPLASM MALIGNANT
     Dosage: 60 MG/M2 Q 21 DAYS IV
     Route: 042
     Dates: start: 20060808
  3. BACITRACIN TOPICAL OINTMENT [Concomitant]
  4. DEXAMETHASONE [Concomitant]
  5. DELODIPINE SA [Concomitant]
  6. FOLIC ACID [Concomitant]
  7. LEVALBUTEROL HCL [Concomitant]
  8. MULTIVITAMIN [Concomitant]
  9. ENSURE [Concomitant]
  10. NYSTATIN [Concomitant]
  11. PROCHLORPHERAZINE [Concomitant]
  12. SENNOSIDES [Concomitant]
  13. THIAMINE HCL [Concomitant]

REACTIONS (8)
  - APNOEA [None]
  - ASTHENIA [None]
  - CONFUSIONAL STATE [None]
  - FATIGUE [None]
  - FEBRILE NEUTROPENIA [None]
  - HEART RATE INCREASED [None]
  - PNEUMONIA [None]
  - STRIDOR [None]
